FAERS Safety Report 6060180-1 (Version None)
Quarter: 2009Q1

REPORT INFORMATION
  Report Type: 
  Country: None (occurrence: None)
  Receive Date: 20090128
  Receipt Date: 20090114
  Transmission Date: 20090719
  Serious: Yes (Hospitalization, Disabling, Other)
  Sender: FDA-Public Use
  Company Number: US-GDP-0714907

PATIENT
  Sex: Female
  Weight: 54.4316 kg

DRUGS (9)
  1. METROGEL [Suspect]
     Indication: ROSACEA
     Dosage: 1 DF BID TOPICAL
     Route: 061
     Dates: start: 19990827, end: 20000127
  2. CEPHALEXIN [Suspect]
  3. MECLIZINE [Concomitant]
  4. MEDROXYOPROGESERONE [Concomitant]
  5. PREMARIN [Concomitant]
  6. DEPAKOTE [Concomitant]
  7. DIAZEPAM [Concomitant]
  8. CIMETIDINE [Concomitant]
  9. ZARONTIN [Concomitant]

REACTIONS (23)
  - ATAXIA [None]
  - CONFUSIONAL STATE [None]
  - CONVULSION [None]
  - COORDINATION ABNORMAL [None]
  - DEPRESSION [None]
  - DIZZINESS [None]
  - DRUG HYPERSENSITIVITY [None]
  - GASTROINTESTINAL PAIN [None]
  - GENERALISED NON-CONVULSIVE EPILEPSY [None]
  - INJECTION SITE HAEMORRHAGE [None]
  - INJURY [None]
  - NAUSEA [None]
  - NERVOUS SYSTEM DISORDER [None]
  - NEUROPATHY PERIPHERAL [None]
  - PATELLOFEMORAL PAIN SYNDROME [None]
  - PETIT MAL EPILEPSY [None]
  - POLYNEUROPATHY [None]
  - SENSORY LOSS [None]
  - SKIN DISORDER [None]
  - TEMPORAL LOBE EPILEPSY [None]
  - VERTIGO [None]
  - VOMITING [None]
  - WHITE BLOOD CELL COUNT DECREASED [None]
